FAERS Safety Report 20886583 (Version 3)
Quarter: 2022Q2

REPORT INFORMATION
  Report Type: Report from Study
  Country: US (occurrence: US)
  Receive Date: 20220527
  Receipt Date: 20220620
  Transmission Date: 20220721
  Serious: No
  Sender: FDA-Public Use
  Company Number: US-NOVARTISTESTPH-NVSC2022US122455

PATIENT
  Sex: Female

DRUGS (1)
  1. MAYZENT [Suspect]
     Active Substance: SIPONIMOD
     Indication: Product used for unknown indication
     Dosage: 2 MG, TITRATION PACKET
     Route: 048

REACTIONS (5)
  - Body temperature abnormal [Unknown]
  - Gait disturbance [Unknown]
  - Contraindicated product administered [Unknown]
  - Malaise [Unknown]
  - Hypoaesthesia [Unknown]
